FAERS Safety Report 17294275 (Version 1)
Quarter: 2020Q1

REPORT INFORMATION
  Report Type: Spontaneous
  Country: IT (occurrence: IT)
  Receive Date: 20200121
  Receipt Date: 20200121
  Transmission Date: 20200409
  Serious: Yes (Hospitalization)
  Sender: FDA-Public Use
  Company Number: NVSC2020IT010313

PATIENT
  Age: 76 Year
  Sex: Male
  Weight: 50 kg

DRUGS (10)
  1. TORASEMIDE HEXAL [Concomitant]
     Indication: OEDEMA DUE TO CARDIAC DISEASE
     Dosage: 10 MG, QD
     Route: 048
     Dates: start: 20191003, end: 20191024
  2. COUMADIN [Concomitant]
     Active Substance: WARFARIN SODIUM
     Indication: DEEP VEIN THROMBOSIS
     Dosage: 2.5 MG, QD
     Route: 048
     Dates: start: 20191003, end: 20191024
  3. ASPIRIN. [Concomitant]
     Active Substance: ASPIRIN
     Indication: ANGINA PECTORIS
     Dosage: 100 MG, QD
     Route: 048
     Dates: start: 20191002, end: 20191024
  4. CLEXANE [Concomitant]
     Active Substance: ENOXAPARIN SODIUM
     Indication: EMBOLISM VENOUS
     Dosage: UNK
     Route: 058
     Dates: start: 20191002, end: 20191006
  5. PANTOPRAZOLO DOC [Concomitant]
     Indication: GASTROOESOPHAGEAL REFLUX DISEASE
     Dosage: 40 MG, QD
     Route: 048
     Dates: start: 20191002, end: 20191024
  6. AMIODARONE SANDOZ [Suspect]
     Active Substance: AMIODARONE
     Indication: TACHYCARDIA
     Dosage: 600 MG, QD
     Route: 048
     Dates: start: 20191002, end: 20191024
  7. ALDACTONE [Concomitant]
     Active Substance: SPIRONOLACTONE
     Indication: HYPERTENSION
     Dosage: 50 MG, QD
     Route: 048
     Dates: start: 20191002, end: 20191024
  8. TAMSULOSINE RANBAXY [Concomitant]
     Indication: BENIGN PROSTATIC HYPERPLASIA
     Dosage: 0.4 MG, QD
     Route: 048
     Dates: start: 20191002, end: 20191024
  9. CARDIAZOL-PARACODINA [Concomitant]
     Active Substance: DIHYDROCODEINE\PENTETRAZOL
     Indication: COUGH
     Dosage: 10 GTT, QD
     Route: 048
     Dates: start: 20191004, end: 20191024
  10. TRIATEC [Concomitant]
     Indication: HYPERTENSION
     Dosage: 2.5 MG, QD
     Route: 048
     Dates: start: 20191002, end: 20191014

REACTIONS (1)
  - Electrocardiogram QT prolonged [Unknown]

NARRATIVE: CASE EVENT DATE: 20191005
